FAERS Safety Report 8502404-4 (Version None)
Quarter: 2012Q3

REPORT INFORMATION
  Report Type: 
  Country: None (occurrence: None)
  Receive Date: 20120711
  Receipt Date: 20120702
  Transmission Date: 20120928
  Serious: Yes (Other)
  Sender: FDA-Public Use
  Company Number: US-ASTRAZENECA-2010SE33350

PATIENT
  Age: 65 Year
  Sex: Female

DRUGS (5)
  1. SEROQUEL [Suspect]
     Indication: STRESS
     Route: 048
  2. CRESTOR [Suspect]
     Route: 048
  3. SEROQUEL [Suspect]
     Indication: POST-TRAUMATIC STRESS DISORDER
     Route: 048
  4. TOPROL-XL [Suspect]
     Route: 048
  5. SEROQUEL [Suspect]
     Indication: SLEEP DISORDER
     Route: 048

REACTIONS (12)
  - VISUAL IMPAIRMENT [None]
  - DYSPNOEA [None]
  - INTENTIONAL DRUG MISUSE [None]
  - ALOPECIA [None]
  - PALPITATIONS [None]
  - MYOCARDIAL INFARCTION [None]
  - CARDIAC DISORDER [None]
  - HEAD INJURY [None]
  - HICCUPS [None]
  - STRESS [None]
  - LIPIDS INCREASED [None]
  - ANXIETY [None]
